FAERS Safety Report 4954800-X (Version None)
Quarter: 2006Q1

REPORT INFORMATION
  Report Type: 
  Country: None (occurrence: None)
  Receive Date: 20060327
  Receipt Date: 20050414
  Transmission Date: 20060701
  Serious: Yes (Death, Hospitalization)
  Sender: FDA-Public Use
  Company Number: US-MERCK-0504USA02991

PATIENT
  Age: 48 Year
  Sex: Male
  Weight: 84 kg

DRUGS (4)
  1. VIOXX [Suspect]
     Indication: ARTHRITIS
     Route: 048
     Dates: start: 20020101, end: 20030412
  2. TARKA [Concomitant]
     Indication: HYPERTENSION
     Route: 065
     Dates: start: 20010101, end: 20030101
  3. FIORICET TABLETS [Concomitant]
     Indication: TENSION HEADACHE
     Route: 065
     Dates: start: 20010101, end: 20030101
  4. TYLENOL [Concomitant]
     Indication: PAIN
     Route: 065
     Dates: start: 19960514, end: 20030412

REACTIONS (2)
  - BASILAR ARTERY THROMBOSIS [None]
  - BRAIN STEM INFARCTION [None]
